FAERS Safety Report 12365360 (Version 1)
Quarter: 2016Q2

REPORT INFORMATION
  Report Type: Report from Study
  Country: US (occurrence: US)
  Receive Date: 20160512
  Receipt Date: 20160512
  Transmission Date: 20160815
  Serious: Yes (Other)
  Sender: FDA-Public Use
  Company Number: PHHO2014US020302

PATIENT
  Age: 69 Year
  Sex: Male
  Weight: 95.2 kg

DRUGS (4)
  1. BLINDED DABRAFENIB [Suspect]
     Active Substance: DABRAFENIB
     Indication: MALIGNANT MELANOMA
     Dosage: UNK
     Route: 048
     Dates: start: 20130725, end: 20140623
  2. BLINDED NO TREATMENT RECEIVED [Suspect]
     Active Substance: INVESTIGATIONAL PRODUCT
     Indication: MALIGNANT MELANOMA
     Dosage: UNK
     Route: 048
     Dates: start: 20130725, end: 20140623
  3. BLINDED TRAMETINIB [Suspect]
     Active Substance: TRAMETINIB
     Indication: MALIGNANT MELANOMA
     Dosage: UNK
     Route: 048
     Dates: start: 20130725, end: 20140623
  4. BLINDED PLACEBO [Suspect]
     Active Substance: INVESTIGATIONAL PRODUCT
     Indication: MALIGNANT MELANOMA
     Dosage: UNK
     Route: 048
     Dates: start: 20130725, end: 20140623

REACTIONS (1)
  - Squamous cell carcinoma [Recovered/Resolved]

NARRATIVE: CASE EVENT DATE: 20141111
